FAERS Safety Report 19207482 (Version 2)
Quarter: 2021Q2

REPORT INFORMATION
  Report Type: Spontaneous
  Country: US (occurrence: US)
  Receive Date: 20210503
  Receipt Date: 20210517
  Transmission Date: 20210717
  Serious: Yes (Other)
  Sender: FDA-Public Use
  Company Number: US-AMGEN-USASP2021062715

PATIENT
  Age: 105 Year
  Sex: Female

DRUGS (1)
  1. PROLIA [Suspect]
     Active Substance: DENOSUMAB
     Indication: PRODUCT USED FOR UNKNOWN INDICATION
     Dosage: UNK
     Route: 065

REACTIONS (5)
  - Dehydration [Unknown]
  - Blood parathyroid hormone increased [Recovered/Resolved]
  - Renal impairment [Unknown]
  - Blood calcium increased [Unknown]
  - Fall [Unknown]

NARRATIVE: CASE EVENT DATE: 20210415
